FAERS Safety Report 4368993-9 (Version None)
Quarter: 2004Q2

REPORT INFORMATION
  Report Type: 
  Country: None (occurrence: None)
  Receive Date: 20040527
  Receipt Date: 20040506
  Transmission Date: 20050107
  Serious: Yes (Hospitalization, Other)
  Sender: FDA-Public Use
  Company Number: US_0404102398

PATIENT
  Age: 62 Year
  Sex: Female

DRUGS (1)
  1. FORTEO [Suspect]
     Dates: start: 20040301

REACTIONS (4)
  - CONSTIPATION [None]
  - FEELING ABNORMAL [None]
  - INTESTINAL PERFORATION [None]
  - PHARMACEUTICAL PRODUCT COMPLAINT [None]
